FAERS Safety Report 7764078-X (Version None)
Quarter: 2011Q3

REPORT INFORMATION
  Report Type: 
  Country: None (occurrence: None)
  Receive Date: 20110921
  Receipt Date: 20110909
  Transmission Date: 20111222
  Serious: Yes (Other)
  Sender: FDA-Public Use
  Company Number: US-BAYER-2011-014490

PATIENT
  Age: 35 Year
  Sex: Female
  Weight: 98 kg

DRUGS (4)
  1. ASCORBIC ACID [Concomitant]
  2. EXCEDRIN (MIGRAINE) [Concomitant]
     Indication: MIGRAINE
  3. YASMIN [Suspect]
     Dosage: UNK
     Route: 048
     Dates: start: 20050201, end: 20060801
  4. YASMIN [Suspect]
     Dosage: UNK
     Dates: start: 20090901, end: 20100301

REACTIONS (3)
  - THROMBOPHLEBITIS SUPERFICIAL [None]
  - INJURY [None]
  - PAIN [None]
